FAERS Safety Report 8883716 (Version 1)
Quarter: 2012Q4

REPORT INFORMATION
  Report Type: 
  Country: US (occurrence: US)
  Receive Date: 20121102
  Receipt Date: 20121102
  Transmission Date: 20130627
  Serious: No
  Sender: FDA-Public Use
  Company Number: US-ASTRAZENECA-2011SE73638

PATIENT
  Sex: Female

DRUGS (4)
  1. CRESTOR [Suspect]
     Route: 048
  2. CLARITIN [Suspect]
     Indication: SLEEP APNOEA SYNDROME
     Route: 048
     Dates: start: 20111030, end: 20111101
  3. AMITRIPTYLINE [Concomitant]
  4. CITALOPRAM [Concomitant]

REACTIONS (3)
  - Sleep apnoea syndrome [Unknown]
  - Muscle spasms [Unknown]
  - Myalgia [Unknown]
